FAERS Safety Report 10008601 (Version 1)
Quarter: 2014Q1

REPORT INFORMATION
  Report Type: Spontaneous
  Country: US (occurrence: US)
  Receive Date: 20140312
  Receipt Date: 20140312
  Transmission Date: 20141002
  Serious: No
  Sender: FDA-Public Use
  Company Number: US-INCYTE CORPORATION-2012IN000265

PATIENT
  Sex: Male

DRUGS (13)
  1. JAKAFI [Suspect]
     Indication: MYELOFIBROSIS
     Dosage: 20 MG, BID
     Route: 048
     Dates: start: 2012, end: 20120224
  2. JAKAFI [Suspect]
     Dosage: 1/2 PILL (10 MG), BID
     Route: 048
     Dates: start: 20120225
  3. AVODART [Concomitant]
     Dosage: 0.5 MG, QD
     Route: 048
  4. COMBIVENT [Concomitant]
     Dosage: UNK
  5. FLOMAX [Concomitant]
     Dosage: 0.4 MG, QD
     Route: 048
  6. SIMVASTATIN [Concomitant]
     Dosage: 40 MG, QD
     Route: 048
  7. NOVOLOG [Concomitant]
     Dosage: UNK
  8. PREDNISONE [Concomitant]
     Dosage: UNK
  9. TRAVATAN [Concomitant]
     Dosage: UNK
  10. PLAVIX [Concomitant]
     Dosage: UNK
  11. ASA [Concomitant]
     Dosage: 81 MG, QD
     Route: 048
  12. GLIMEPIRIDE [Concomitant]
     Dosage: 2 MG, QD
     Route: 048
  13. COMBIGAN [Concomitant]
     Dosage: 1 DROP, TID IN BOTH EYES

REACTIONS (5)
  - Fatigue [Not Recovered/Not Resolved]
  - Platelet count decreased [Unknown]
  - Haemoglobin decreased [Unknown]
  - Medication error [None]
  - Asthenia [Unknown]
